FAERS Safety Report 5869770-X (Version None)
Quarter: 2008Q3

REPORT INFORMATION
  Report Type: 
  Country: None (occurrence: None)
  Receive Date: 20080904
  Receipt Date: 20080826
  Transmission Date: 20090109
  Serious: Yes (Hospitalization)
  Sender: FDA-Public Use
  Company Number: AU-ROCHE-583033

PATIENT
  Age: 16 Year
  Sex: Male

DRUGS (1)
  1. ISOTRETINOIN [Suspect]
     Indication: ACNE
     Dosage: DOSAGE REGIMEN: DAILY
     Route: 065

REACTIONS (2)
  - DEPRESSION [None]
  - SUICIDE ATTEMPT [None]
